FAERS Safety Report 6536174-6 (Version None)
Quarter: 2010Q1

REPORT INFORMATION
  Report Type: 
  Country: None (occurrence: None)
  Receive Date: 20100113
  Receipt Date: 20091029
  Transmission Date: 20100710
  Serious: No
  Sender: FDA-Public Use
  Company Number: US-ALLERGAN-0914982US

PATIENT
  Age: 77 Year
  Sex: Female

DRUGS (2)
  1. LATISSE [Suspect]
     Indication: HYPOTRICHOSIS
     Dosage: 1 GTT, QHS
     Route: 061
     Dates: start: 20090824, end: 20090826
  2. LATISSE [Suspect]
     Dosage: 1 GTT, QHS
     Route: 061

REACTIONS (2)
  - BURNING SENSATION [None]
  - EYELID PAIN [None]
